FAERS Safety Report 6159784-7 (Version None)
Quarter: 2009Q2

REPORT INFORMATION
  Report Type: 
  Country: None (occurrence: None)
  Receive Date: 20090420
  Receipt Date: 20090408
  Transmission Date: 20091009
  Serious: Yes (Hospitalization, Other)
  Sender: FDA-Public Use
  Company Number: US-ELI_LILLY_AND_COMPANY-US200904001858

PATIENT
  Sex: Female

DRUGS (7)
  1. FORTEO [Suspect]
     Indication: OSTEOARTHRITIS
     Dates: start: 20060124, end: 20070801
  2. ADVAIR HFA [Concomitant]
  3. SPIRIVA [Concomitant]
  4. ALBUTEROL [Concomitant]
  5. ASPIRIN [Concomitant]
  6. NITROGLYCERIN [Concomitant]
  7. CARTIA /USA/ [Concomitant]

REACTIONS (15)
  - ADRENAL NEOPLASM [None]
  - ARTHRITIS [None]
  - ARTHROPATHY [None]
  - CARCINOEMBRYONIC ANTIGEN INCREASED [None]
  - CATHETERISATION CARDIAC [None]
  - COLITIS [None]
  - DIPLOPIA [None]
  - HAEMOGLOBIN DECREASED [None]
  - MACULOPATHY [None]
  - MUSCULOSKELETAL DISORDER [None]
  - RECTAL HAEMORRHAGE [None]
  - SPINAL DISORDER [None]
  - SPINAL OSTEOARTHRITIS [None]
  - SPONDYLITIS [None]
  - SYSTEMIC LUPUS ERYTHEMATOSUS [None]
